FAERS Safety Report 10193892 (Version 1)
Quarter: 2014Q2

REPORT INFORMATION
  Report Type: Spontaneous
  Country: US (occurrence: US)
  Receive Date: 20140524
  Receipt Date: 20140524
  Transmission Date: 20141212
  Serious: No
  Sender: FDA-Public Use
  Company Number: US-SANOFI-AVENTIS-2013SA052768

PATIENT
  Sex: Female

DRUGS (2)
  1. LANTUS SOLOSTAR [Suspect]
     Dosage: TAKEN FROM- 6 DAYS AGO DOSE:17 UNIT(S)
     Route: 065
  2. SOLOSTAR [Suspect]
     Dosage: TAKEN FROM- 6 DAYS AGO

REACTIONS (3)
  - Abdominal pain upper [Unknown]
  - Pain [Unknown]
  - Dysstasia [Unknown]
